FAERS Safety Report 11460190 (Version 2)
Quarter: 2015Q3

REPORT INFORMATION
  Report Type: Spontaneous
  Country: JP (occurrence: JP)
  Receive Date: 20150904
  Receipt Date: 20150917
  Transmission Date: 20151125
  Serious: Yes (Other)
  Sender: FDA-Public Use
  Company Number: JP-009507513-1509JPN001788

PATIENT
  Sex: Male

DRUGS (2)
  1. TEMODAL [Suspect]
     Active Substance: TEMOZOLOMIDE
     Indication: MALIGNANT GLIOMA
     Dosage: DAILY DOSAGE UNKNOWN
     Route: 065
     Dates: start: 2013, end: 2015
  2. TEMODAL [Suspect]
     Active Substance: TEMOZOLOMIDE
     Dosage: DAILY DOSAGE UNKNOWN
     Route: 065
     Dates: start: 2015

REACTIONS (1)
  - Malignant glioma [Unknown]

NARRATIVE: CASE EVENT DATE: 2015
